FAERS Safety Report 22532428 (Version 1)
Quarter: 2023Q2

REPORT INFORMATION
  Report Type: Spontaneous
  Country: US (occurrence: US)
  Receive Date: 20230607
  Receipt Date: 20230607
  Transmission Date: 20230721
  Serious: No
  Sender: FDA-Public Use
  Company Number: US-SA-SAC20230605001072

PATIENT
  Sex: Female
  Weight: 64.8 kg

DRUGS (4)
  1. DUPIXENT [Suspect]
     Active Substance: DUPILUMAB
     Indication: Asthma
     Dosage: 300 MG, QOW
     Route: 058
  2. DUPIXENT [Suspect]
     Active Substance: DUPILUMAB
     Indication: Dermatitis atopic
  3. ATOMOXETINE [Concomitant]
     Active Substance: ATOMOXETINE
     Dosage: UNK
  4. BUPROPION [Concomitant]
     Active Substance: BUPROPION
     Dosage: UNK

REACTIONS (2)
  - Sinus headache [Not Recovered/Not Resolved]
  - Dermatitis atopic [Not Recovered/Not Resolved]
